FAERS Safety Report 10136899 (Version 1)
Quarter: 2014Q2

REPORT INFORMATION
  Report Type: Spontaneous
  Country: US (occurrence: None)
  Receive Date: 20140425
  Receipt Date: 20140425
  Transmission Date: 20141212
  Serious: Yes (Hospitalization)
  Sender: FDA-Public Use
  Company Number: UTC-047646

PATIENT
  Age: 51 Year
  Sex: Female

DRUGS (1)
  1. REMODULIN (5 MILLIGRAM/MILLILITERES, INJECTION FOR INFUSION (TREPROSTINIL SODIUM) [Suspect]
     Indication: PULMONARY ARTERIAL HYPERTENSION
     Dosage: 1 IN 1 MIN.
     Route: 041
     Dates: start: 20120118

REACTIONS (1)
  - Medical device complication [None]
